FAERS Safety Report 16296847 (Version 3)
Quarter: 2022Q4

REPORT INFORMATION
  Report Type: Report from Study
  Country: US (occurrence: US)
  Receive Date: 20190510
  Receipt Date: 20221116
  Transmission Date: 20230112
  Serious: Yes (Hospitalization, Other)
  Sender: FDA-Public Use
  Company Number: US-HORIZON-PRO-0098-2019

PATIENT

DRUGS (3)
  1. PROCYSBI [Suspect]
     Active Substance: CYSTEAMINE BITARTRATE
     Indication: Cystinosis
     Dosage: 1000 MG (13X75 MG CAPSULES, 1X25 MG CAPSULE) EVERY 12 HOURS
     Route: 048
     Dates: start: 20150616
  2. PROCYSBI [Suspect]
     Active Substance: CYSTEAMINE BITARTRATE
     Dosage: TAKE 1150 MG (15 X 75 MG CAPSULES AND 1 X 25 MG CAPSULES) BY MOUTH EVERY 12 HOURS
     Route: 048
  3. PROCYSBI [Suspect]
     Active Substance: CYSTEAMINE BITARTRATE
     Dosage: TAKE 1150 MG (15 X 75 MG CAPSULES AND 1 X 25 MG CAPSULES) BY MOUTH EVERY 12 HOURS
     Route: 048

REACTIONS (8)
  - Diarrhoea [Unknown]
  - Abdominal pain upper [Unknown]
  - Abdominal discomfort [Unknown]
  - Cardiac failure [Unknown]
  - Aspiration [Not Recovered/Not Resolved]
  - Dialysis [Not Recovered/Not Resolved]
  - Blindness [Unknown]
  - Treatment noncompliance [Unknown]

NARRATIVE: CASE EVENT DATE: 20190420
